FAERS Safety Report 8959555 (Version 3)
Quarter: 2012Q4

REPORT INFORMATION
  Report Type: 
  Country: US (occurrence: US)
  Receive Date: 20121212
  Receipt Date: 20121221
  Transmission Date: 20130627
  Serious: Yes (Other)
  Sender: FDA-Public Use
  Company Number: US-009507513-1212USA003974

PATIENT
  Age: 70 Year
  Sex: Female

DRUGS (2)
  1. TIMOLOL MALEATE [Suspect]
     Indication: INTRAOCULAR PRESSURE INCREASED
  2. TIMOPTIC [Suspect]
     Indication: INTRAOCULAR PRESSURE INCREASED
     Dosage: 1 DF, bid
     Route: 031
     Dates: start: 20121107, end: 20121112

REACTIONS (2)
  - Burning sensation [Recovering/Resolving]
  - Dermatitis [Recovering/Resolving]
